FAERS Safety Report 4659797-8 (Version None)
Quarter: 2005Q2

REPORT INFORMATION
  Report Type: 
  Country: None (occurrence: None)
  Receive Date: 20050510
  Receipt Date: 20050427
  Transmission Date: 20051028
  Serious: Yes (Death)
  Sender: FDA-Public Use
  Company Number: USA-2005-0019979

PATIENT
  Age: 81 Year
  Sex: Female

DRUGS (2)
  1. MORPHINE SULFATE [Suspect]
     Dosage: MG, INTRAVENOUS
     Route: 042
  2. OXYCONTIN [Suspect]
     Dates: end: 20050401

REACTIONS (1)
  - MYOCARDIAL INFARCTION [None]
